FAERS Safety Report 4732981-0 (Version None)
Quarter: 2005Q3

REPORT INFORMATION
  Report Type: 
  Country: None (occurrence: None)
  Receive Date: 20050801
  Receipt Date: 20050719
  Transmission Date: 20060218
  Serious: Yes (Other)
  Sender: FDA-Public Use
  Company Number: 2005104870

PATIENT
  Age: 69 Year
  Sex: Female

DRUGS (7)
  1. ZOLOFT [Suspect]
     Indication: DEPRESSION
     Dosage: 100 MG (100 MG, 1 IN 1 D)
     Dates: start: 20050101
  2. MORPHINE [Concomitant]
  3. MEGESTROL ACETATE [Concomitant]
  4. ERLOTINIIB (ERLOTINIB) [Concomitant]
  5. OXYCODONE (OXYCOCONE) [Concomitant]
  6. DEXAMETHASONE [Concomitant]
  7. GABAPENTIN [Concomitant]

REACTIONS (4)
  - LUNG NEOPLASM MALIGNANT [None]
  - MALIGNANT NEOPLASM PROGRESSION [None]
  - METASTASES TO BONE [None]
  - PAIN [None]
